FAERS Safety Report 4766331-0 (Version None)
Quarter: 2005Q3

REPORT INFORMATION
  Report Type: 
  Country: None (occurrence: None)
  Receive Date: 20050909
  Receipt Date: 20050902
  Transmission Date: 20060218
  Serious: Yes (Hospitalization)
  Sender: FDA-Public Use
  Company Number: 2005-132185-NL

PATIENT
  Age: 70 Year
  Sex: Male

DRUGS (10)
  1. ROCURONIUM BROMIDE [Suspect]
     Dosage: DF INTRAVENOUS (NOS)
     Route: 042
  2. FENTANYL [Suspect]
     Dosage: DF
  3. CEFOTAXIME SODIUM [Suspect]
     Dosage: 3 G QD INTRAVENOUS (NOS)
     Route: 042
     Dates: start: 20020730, end: 20020731
  4. METRONIDAZOLE [Suspect]
     Dosage: 1 G QD INTRAVENOUS (NOS)
     Route: 042
     Dates: start: 20050730, end: 20050731
  5. SEVOFLURANE [Suspect]
     Dosage: DF RESPIRATORY (INHALATION)
     Route: 055
  6. EPHEDRINE [Suspect]
     Dosage: DF
  7. DIGOXIN [Concomitant]
  8. OMEPRAZOLE [Concomitant]
  9. NYSTATIN [Concomitant]
  10. ENOXAPARIN SODIUM [Concomitant]

REACTIONS (2)
  - HEPATIC FAILURE [None]
  - POST PROCEDURAL COMPLICATION [None]
